FAERS Safety Report 8494529-7 (Version None)
Quarter: 2012Q3

REPORT INFORMATION
  Report Type: 
  Country: None (occurrence: None)
  Receive Date: 20120709
  Receipt Date: 20120625
  Transmission Date: 20120928
  Serious: No
  Sender: FDA-Public Use
  Company Number: FR-JNJFOC-20120605866

PATIENT
  Age: 65 Year
  Sex: Male

DRUGS (4)
  1. DURAGESIC-100 [Suspect]
     Indication: ILL-DEFINED DISORDER
     Route: 062
  2. LEUPROLIDE ACETATE [Concomitant]
     Route: 065
  3. DURAGESIC-100 [Suspect]
     Route: 062
     Dates: start: 20120619
  4. ZYTIGA [Suspect]
     Indication: PROSTATE CANCER
     Route: 065

REACTIONS (4)
  - WRONG TECHNIQUE IN DRUG USAGE PROCESS [None]
  - DRUG INEFFECTIVE [None]
  - HYPERHIDROSIS [None]
  - PRODUCT QUALITY ISSUE [None]
